APPROVED DRUG PRODUCT: TRANDOLAPRIL
Active Ingredient: TRANDOLAPRIL
Strength: 4MG
Dosage Form/Route: TABLET;ORAL
Application: A078508 | Product #002 | TE Code: AB
Applicant: EPIC PHARMA LLC
Approved: Jun 18, 2008 | RLD: No | RS: No | Type: RX